FAERS Safety Report 7870068 (Version 6)
Quarter: 2020Q3

REPORT INFORMATION
  Report Type: Spontaneous
  Country: IT (occurrence: IT)
  Receive Date: 20110324
  Receipt Date: 20200709
  Transmission Date: 20201103
  Serious: Yes (Other)
  Sender: FDA-Public Use
  Company Number: PHHY2011IT20447

PATIENT
  Age: 22 Year
  Sex: Male

DRUGS (21)
  1. METHOTREXATE. [Suspect]
     Active Substance: METHOTREXATE
     Indication: BEHCET^S SYNDROME
     Dosage: 20 MG, QW
     Route: 065
     Dates: start: 200003, end: 200010
  2. CICLOSPORIN [Suspect]
     Active Substance: CYCLOSPORINE
     Indication: BEHCET^S SYNDROME
     Dosage: 5 MG/KG/DAY
     Route: 065
     Dates: start: 199902, end: 200002
  3. MYCOPHENOLATE [Suspect]
     Active Substance: MYCOPHENOLIC ACID
     Indication: BEHCET^S SYNDROME
     Dosage: 2?3 G/DAY
     Route: 065
     Dates: start: 200601, end: 200705
  4. PREDNISON [Suspect]
     Active Substance: PREDNISONE
     Dosage: 20 MG, 1, AS NECESSARY
     Route: 065
  5. AZATHIOPRINE. [Suspect]
     Active Substance: AZATHIOPRINE
     Indication: BEHCET^S SYNDROME
     Dosage: 2 MG/KG, QD
     Route: 065
     Dates: start: 200202, end: 200204
  6. AZATHIOPRINE. [Suspect]
     Active Substance: AZATHIOPRINE
     Dosage: 0.17 MG/KG, UNK
     Route: 065
     Dates: start: 200501, end: 200509
  7. PREDNISON [Suspect]
     Active Substance: PREDNISONE
     Dosage: 0.37 MG/KG/DAY
     Route: 065
     Dates: start: 200601, end: 200703
  8. INFLIXIMAB [Suspect]
     Active Substance: INFLIXIMAB
     Indication: BEHCET^S SYNDROME
     Dosage: 5 MG/KG, QD
     Route: 042
     Dates: start: 200510, end: 200512
  9. ASPIRIN. [Concomitant]
     Active Substance: ASPIRIN
     Indication: MACULAR ISCHAEMIA
     Dosage: UNK
     Route: 065
     Dates: start: 2004
  10. PREDNISON [Suspect]
     Active Substance: PREDNISONE
     Dosage: }30 MG
     Route: 048
     Dates: start: 200206, end: 200501
  11. METHOTREXATE. [Suspect]
     Active Substance: METHOTREXATE
     Dosage: 15 MG, QW
     Route: 065
     Dates: start: 200204, end: 200206
  12. PREDNISON [Suspect]
     Active Substance: PREDNISONE
     Dosage: 0.11 MG/KG/DAY
     Route: 065
  13. INTERFERON ALFA NOS [Suspect]
     Active Substance: INTERFERON ALFA-2A OR INTERFERON ALFA-2B
     Indication: EYE DISORDER
  14. INTERFERON ALFA NOS [Suspect]
     Active Substance: INTERFERON ALFA-2A OR INTERFERON ALFA-2B
     Indication: BEHCET^S SYNDROME
     Route: 065
     Dates: start: 200003, end: 200010
  15. PREDNISON [Suspect]
     Active Substance: PREDNISONE
     Indication: BEHCET^S SYNDROME
     Dosage: 1 MG/KG, QD
     Route: 065
  16. AMLODIPINE [Concomitant]
     Active Substance: AMLODIPINE BESYLATE
     Indication: HYPERTENSION
     Dosage: UNK
     Route: 065
     Dates: start: 2005
  17. METHOTREXATE. [Suspect]
     Active Substance: METHOTREXATE
     Dosage: 20 MG, QD
     Route: 065
  18. TRIAMCINOLONE [Suspect]
     Active Substance: TRIAMCINOLONE
     Indication: BEHCET^S SYNDROME
     Dosage: 40 MG
     Route: 047
  19. METHYLPREDNISOLONE. [Suspect]
     Active Substance: METHYLPREDNISOLONE
     Indication: BEHCET^S SYNDROME
     Route: 042
  20. CHLORAMBUCIL [Suspect]
     Active Substance: CHLORAMBUCIL
     Indication: BEHCET^S SYNDROME
     Dosage: 0.1 MG/KG, QD
     Route: 065
     Dates: start: 200011
  21. CHLORAMBUCIL [Suspect]
     Active Substance: CHLORAMBUCIL
     Dosage: 02 MG/KG, QD
     Route: 065
     Dates: end: 200107

REACTIONS (18)
  - Pulmonary tuberculosis [Unknown]
  - Renal impairment [Unknown]
  - Transaminases increased [Unknown]
  - Nephrolithiasis [Unknown]
  - Leukopenia [Unknown]
  - Nephropathy toxic [Unknown]
  - Spinal fracture [Unknown]
  - Depression [Unknown]
  - Suicide attempt [Unknown]
  - Alanine aminotransferase increased [Unknown]
  - Multiple-drug resistance [Unknown]
  - Cataract [Unknown]
  - Glaucoma [Unknown]
  - Drug ineffective [Recovered/Resolved]
  - Product use in unapproved indication [Unknown]
  - Pneumonia [Unknown]
  - Behcet^s syndrome [Recovered/Resolved]
  - Osteoporosis [Unknown]
